FAERS Safety Report 8901935 (Version 1)
Quarter: 2012Q4

REPORT INFORMATION
  Report Type: Spontaneous
  Country: US (occurrence: None)
  Receive Date: 20121109
  Receipt Date: 20121109
  Transmission Date: 20130627
  Serious: Yes (Other)
  Sender: FDA-Public Use
  Company Number: None

PATIENT
  Age: 63 Year
  Sex: Female
  Weight: 81.65 kg

DRUGS (1)
  1. LEVOFLOXACIN [Suspect]
     Indication: SINUS INFECTION
     Route: 048
     Dates: start: 20121107, end: 20121107

REACTIONS (7)
  - Insomnia [None]
  - Nausea [None]
  - Headache [None]
  - Frequent bowel movements [None]
  - Flatulence [None]
  - Pain in extremity [None]
  - Abdominal pain upper [None]
